FAERS Safety Report 8018490-4 (Version None)
Quarter: 2012Q1

REPORT INFORMATION
  Report Type: 
  Country: None (occurrence: None)
  Receive Date: 20120103
  Receipt Date: 20111222
  Transmission Date: 20120608
  Serious: Yes (Hospitalization, Other)
  Sender: FDA-Public Use
  Company Number: US-BAYER-2011-033383

PATIENT
  Age: 34 Year
  Sex: Female
  Weight: 81.633 kg

DRUGS (2)
  1. NSAID'S [Concomitant]
     Indication: PAIN
     Dosage: UNK UNK, PRN
     Route: 048
  2. YASMIN [Suspect]
     Indication: CONTRACEPTION
     Dosage: UNK
     Route: 048
     Dates: start: 20000101, end: 20070101

REACTIONS (5)
  - CHOLECYSTITIS CHRONIC [None]
  - PAIN [None]
  - CHOLECYSTITIS INFECTIVE [None]
  - GALLBLADDER DISORDER [None]
  - INJURY [None]
